FAERS Safety Report 23740602 (Version 1)
Quarter: 2024Q2

REPORT INFORMATION
  Report Type: Spontaneous
  Country: CO (occurrence: CO)
  Receive Date: 20240415
  Receipt Date: 20240415
  Transmission Date: 20240716
  Serious: Yes (Hospitalization, Other)
  Sender: FDA-Public Use
  Company Number: CO-AMNEAL PHARMACEUTICALS-2024-AMRX-01211

PATIENT
  Age: 64 Year
  Sex: Female

DRUGS (2)
  1. NOREPINEPHRINE BITARTRATE [Suspect]
     Active Substance: NOREPINEPHRINE BITARTRATE
     Indication: Septic shock
     Dosage: UNK
     Route: 065
  2. NOREPINEPHRINE BITARTRATE [Suspect]
     Active Substance: NOREPINEPHRINE BITARTRATE
     Dosage: UNK, DOSE TITRATED
     Route: 065

REACTIONS (2)
  - Electrocardiogram ST segment elevation [Recovered/Resolved]
  - Chest pain [Recovered/Resolved]
